FAERS Safety Report 11420165 (Version 2)
Quarter: 2015Q3

REPORT INFORMATION
  Report Type: Spontaneous
  Country: US (occurrence: US)
  Receive Date: 20150826
  Receipt Date: 20150921
  Transmission Date: 20151125
  Serious: Yes (Other)
  Sender: FDA-Public Use
  Company Number: US-PFIZER INC-2015284207

PATIENT
  Age: 38 Year
  Sex: Male

DRUGS (1)
  1. XELJANZ [Suspect]
     Active Substance: TOFACITINIB CITRATE
     Indication: RHEUMATOID ARTHRITIS
     Dosage: 5 MG, 2X/DAY
     Route: 048
     Dates: start: 20140912

REACTIONS (5)
  - Arthritis infective [Unknown]
  - Pyrexia [Unknown]
  - Hyperhidrosis [Unknown]
  - Vomiting [Unknown]
  - Chills [Unknown]

NARRATIVE: CASE EVENT DATE: 20150824
